FAERS Safety Report 6111316-5 (Version None)
Quarter: 2009Q1

REPORT INFORMATION
  Report Type: 
  Country: None (occurrence: None)
  Receive Date: 20090311
  Receipt Date: 20090304
  Transmission Date: 20090719
  Serious: Yes (Death, Other)
  Sender: FDA-Public Use
  Company Number: US-ELI_LILLY_AND_COMPANY-US200812004666

PATIENT
  Age: 56 Year
  Sex: Male

DRUGS (1)
  1. CYMBALTA [Suspect]
     Indication: DEPRESSION
     Dosage: 30 MG, UNK
     Dates: start: 20080801

REACTIONS (6)
  - CARDIAC DISORDER [None]
  - COAGULOPATHY [None]
  - DEATH [None]
  - HEPATIC FAILURE [None]
  - LIVER DISORDER [None]
  - VASCULAR GRAFT [None]
